FAERS Safety Report 8454302-2 (Version None)
Quarter: 2012Q2

REPORT INFORMATION
  Report Type: 
  Country: None (occurrence: None)
  Receive Date: 20120620
  Receipt Date: 20120423
  Transmission Date: 20120825
  Serious: Yes (Other)
  Sender: FDA-Public Use
  Company Number: PHHY2012KR029715

PATIENT
  Sex: Male
  Weight: 22 kg

DRUGS (6)
  1. EXJADE [Suspect]
     Indication: ACUTE MYELOID LEUKAEMIA
     Dosage: 30 MG/KG, UNK
     Route: 048
     Dates: start: 20100828
  2. TACROLIMUS [Concomitant]
  3. PREDNISOLONE [Concomitant]
  4. STEROIDS NOS [Concomitant]
  5. IMMUNOSUPPRESSANTS [Concomitant]
  6. CETIRIZINE HCL [Concomitant]

REACTIONS (2)
  - OBSTRUCTIVE AIRWAYS DISORDER [None]
  - DIABETES MELLITUS [None]
